FAERS Safety Report 8306060-X (Version None)
Quarter: 2012Q2

REPORT INFORMATION
  Report Type: 
  Country: None (occurrence: None)
  Receive Date: 20120423
  Receipt Date: 20120420
  Transmission Date: 20120825
  Serious: Yes (Other)
  Sender: FDA-Public Use
  Company Number: BR-ROCHE-1061641

PATIENT
  Sex: Female
  Weight: 60 kg

DRUGS (1)
  1. BONIVA [Suspect]
     Indication: OSTEOPOROSIS
     Dates: start: 20120330, end: 20120330

REACTIONS (5)
  - SYNCOPE [None]
  - IMMOBILE [None]
  - IMPAIRED SELF-CARE [None]
  - BACK PAIN [None]
  - PAIN [None]
